FAERS Safety Report 25504224 (Version 2)
Quarter: 2025Q3

REPORT INFORMATION
  Report Type: Spontaneous
  Country: US (occurrence: US)
  Receive Date: 20250702
  Receipt Date: 20250801
  Transmission Date: 20251020
  Serious: No
  Sender: PFIZER
  Company Number: US-PFIZER INC-202500130854

PATIENT
  Age: 56 Year
  Sex: Female
  Weight: 79.92 kg

DRUGS (1)
  1. SOMAVERT [Suspect]
     Active Substance: PEGVISOMANT
     Indication: Acromegaly
     Dosage: 30 MG, DAILY

REACTIONS (3)
  - Anxiety [Unknown]
  - Gastrointestinal disorder [Unknown]
  - Diarrhoea [Unknown]
